FAERS Safety Report 7497730-4 (Version None)
Quarter: 2011Q2

REPORT INFORMATION
  Report Type: 
  Country: None (occurrence: None)
  Receive Date: 20110523
  Receipt Date: 20110511
  Transmission Date: 20111010
  Serious: Yes (Other)
  Sender: FDA-Public Use
  Company Number: BE-GENENTECH-317249

PATIENT
  Age: 42 Year
  Sex: Male

DRUGS (5)
  1. XOLAIR [Suspect]
     Indication: ASTHMA
     Dosage: 225 MG, Q2W
     Route: 058
     Dates: start: 20110301
  2. XOLAIR [Suspect]
     Dosage: 225 MG, Q2W
     Route: 058
     Dates: start: 20110509
  3. DUOVENT [Concomitant]
     Indication: PRODUCT USED FOR UNKNOWN INDICATION
  4. XANTHIUM [Concomitant]
     Indication: PRODUCT USED FOR UNKNOWN INDICATION
  5. INUVAIR [Concomitant]
     Indication: PRODUCT USED FOR UNKNOWN INDICATION

REACTIONS (6)
  - FATIGUE [None]
  - ASPARTATE AMINOTRANSFERASE INCREASED [None]
  - TENDON PAIN [None]
  - MYALGIA [None]
  - MALAISE [None]
  - BLOOD LACTATE DEHYDROGENASE [None]
